FAERS Safety Report 5713946-9 (Version None)
Quarter: 2008Q2

REPORT INFORMATION
  Report Type: 
  Country: None (occurrence: None)
  Receive Date: 20080422
  Receipt Date: 20080422
  Transmission Date: 20081010
  Serious: Yes (Hospitalization)
  Sender: FDA-Public Use
  Company Number: None

PATIENT
  Sex: Female
  Weight: 65.9 kg

DRUGS (3)
  1. TEMOZOLOMIDE [Suspect]
     Dosage: 5535 MG
  2. BACTRIM DS [Concomitant]
  3. DILANTIN [Concomitant]

REACTIONS (1)
  - THROMBOCYTOPENIA [None]
